FAERS Safety Report 25182859 (Version 3)
Quarter: 2025Q3

REPORT INFORMATION
  Report Type: Spontaneous
  Country: US (occurrence: US)
  Receive Date: 20250410
  Receipt Date: 20250821
  Transmission Date: 20251021
  Serious: Yes (Life-Threatening, Hospitalization, Other)
  Sender: SANOFI AVENTIS
  Company Number: US-MLMSERVICE-20250331-PI462774-00077-1

PATIENT
  Age: 61 Year
  Sex: Male

DRUGS (2)
  1. CAPECITABINE [Suspect]
     Active Substance: CAPECITABINE
     Indication: Adenocarcinoma of colon
  2. OXALIPLATIN [Suspect]
     Active Substance: OXALIPLATIN
     Indication: Adenocarcinoma of colon

REACTIONS (10)
  - Thrombotic thrombocytopenic purpura [Recovering/Resolving]
  - Encephalopathy [Recovering/Resolving]
  - Anaemia [Recovering/Resolving]
  - Pyrexia [Recovering/Resolving]
  - Seizure [Recovering/Resolving]
  - Thrombocytopenia [Recovering/Resolving]
  - Hyperbilirubinaemia [Recovering/Resolving]
  - Haemolysis [Recovering/Resolving]
  - Thrombocytosis [Recovering/Resolving]
  - Small intestinal obstruction [Recovering/Resolving]
